FAERS Safety Report 7539576-4 (Version None)
Quarter: 2011Q2

REPORT INFORMATION
  Report Type: 
  Country: None (occurrence: None)
  Receive Date: 20110609
  Receipt Date: 20110609
  Transmission Date: 20111010
  Serious: Yes (Hospitalization)
  Sender: FDA-Public Use
  Company Number: None

PATIENT
  Age: 81 Year
  Sex: Female
  Weight: 81.6475 kg

DRUGS (1)
  1. LOSARTAN POTASSIUM AND HYDROCHLOROTHIAZIDE [Suspect]

REACTIONS (15)
  - CONSTIPATION [None]
  - NAUSEA [None]
  - PAIN [None]
  - MUSCULOSKELETAL PAIN [None]
  - ABDOMINAL PAIN UPPER [None]
  - MUSCULOSKELETAL DISCOMFORT [None]
  - UNEVALUABLE EVENT [None]
  - PRURITUS [None]
  - SENSATION OF HEAVINESS [None]
  - PAIN IN EXTREMITY [None]
  - HYPERTENSION [None]
  - HEART RATE INCREASED [None]
  - HEADACHE [None]
  - INSOMNIA [None]
  - SKIN EXFOLIATION [None]
